FAERS Safety Report 8290833-6 (Version None)
Quarter: 2012Q2

REPORT INFORMATION
  Report Type: 
  Country: None (occurrence: None)
  Receive Date: 20120417
  Receipt Date: 20110502
  Transmission Date: 20120825
  Serious: No
  Sender: FDA-Public Use
  Company Number: US-ASTRAZENECA-2011SE26333

PATIENT
  Age: 82 Year
  Sex: Female
  Weight: 83.5 kg

DRUGS (7)
  1. AMBIEN CR [Concomitant]
     Route: 065
  2. NEXIUM [Suspect]
     Route: 048
  3. DIOVAN [Suspect]
     Route: 065
  4. SYNTHROID [Concomitant]
     Route: 065
  5. PREMARIN [Concomitant]
     Route: 065
  6. MAXZIDE [Concomitant]
     Route: 065
  7. ZYRTEC [Concomitant]
     Route: 065

REACTIONS (3)
  - FEELING ABNORMAL [None]
  - ABDOMINAL PAIN UPPER [None]
  - BLOOD PRESSURE INCREASED [None]
